FAERS Safety Report 23287590 (Version 1)
Quarter: 2023Q4

REPORT INFORMATION
  Report Type: Spontaneous
  Country: US (occurrence: US)
  Receive Date: 20231212
  Receipt Date: 20231212
  Transmission Date: 20240109
  Serious: Yes (Other)
  Sender: FDA-Public Use
  Company Number: US-ORGANON-O2312USA000979

PATIENT
  Sex: Female

DRUGS (1)
  1. NEXPLANON [Suspect]
     Active Substance: ETONOGESTREL
     Dosage: 1 IMPLANT
     Route: 059

REACTIONS (5)
  - Pregnancy with implant contraceptive [Unknown]
  - Unintended pregnancy [Unknown]
  - Incorrect product administration duration [Unknown]
  - Product prescribing issue [Unknown]
  - No adverse event [Unknown]
